FAERS Safety Report 14279451 (Version 1)
Quarter: 2017Q4

REPORT INFORMATION
  Report Type: Spontaneous
  Country: US (occurrence: US)
  Receive Date: 20171212
  Receipt Date: 20171212
  Transmission Date: 20180321
  Serious: Yes (Other)
  Sender: FDA-Public Use
  Company Number: US-NAPPMUNDI-USA-2017-0136415

PATIENT
  Sex: Male

DRUGS (1)
  1. DILAUDID [Suspect]
     Active Substance: HYDROMORPHONE HYDROCHLORIDE
     Indication: DRUG ABUSE
     Dosage: (12-14 X 4 MG) 48-56 MG, DAILY
     Route: 048

REACTIONS (6)
  - Drug abuse [Unknown]
  - Nausea [Unknown]
  - Drug withdrawal syndrome [Unknown]
  - Muscle twitching [Unknown]
  - Diarrhoea [Unknown]
  - Drug detoxification [Unknown]
